FAERS Safety Report 5716489-1 (Version None)
Quarter: 2008Q2

REPORT INFORMATION
  Report Type: 
  Country: None (occurrence: None)
  Receive Date: 20080424
  Receipt Date: 20080414
  Transmission Date: 20081010
  Serious: Yes (Other)
  Sender: FDA-Public Use
  Company Number: US-WYE-H03628708

PATIENT
  Sex: Male
  Weight: 111.23 kg

DRUGS (10)
  1. EFFEXOR XR [Suspect]
     Indication: MAJOR DEPRESSION
     Dosage: 300 MG IN THE MORNING AND 2 TO 3 37.5 MG CAPSULES IN THE EVENING
     Route: 048
     Dates: start: 20010101, end: 20080407
  2. EFFEXOR XR [Suspect]
     Route: 048
     Dates: start: 20080410
  3. SOMA [Concomitant]
     Indication: MUSCLE RELAXANT THERAPY
     Dosage: UNKNOWN
  4. RISPERDAL [Concomitant]
     Dosage: 0.5 MG AT BEDTIME AS NEEDED
  5. HYDROCODONE BITARTRATE [Concomitant]
     Indication: PAIN
     Dosage: UNKNOWN
  6. INDERAL [Concomitant]
     Dosage: UNKNOWN
  7. NEURONTIN [Concomitant]
     Dosage: UNKNOWN
  8. OXYCODONE HCL [Concomitant]
     Indication: PAIN
     Dosage: UNKNOWN
     Dates: start: 20080408
  9. PRISTIQ [Suspect]
     Indication: MAJOR DEPRESSION
     Route: 048
     Dates: start: 20080408, end: 20080409
  10. DIAZEPAM [Concomitant]
     Dosage: UNKNOWN

REACTIONS (17)
  - AGGRESSION [None]
  - AGITATION [None]
  - ANGER [None]
  - CONDITION AGGRAVATED [None]
  - DEPRESSION [None]
  - DRUG EFFECT DECREASED [None]
  - DRUG WITHDRAWAL SYNDROME [None]
  - IRRITABILITY [None]
  - LOGORRHOEA [None]
  - MANIA [None]
  - MOOD ALTERED [None]
  - MORBID THOUGHTS [None]
  - PANIC DISORDER [None]
  - RESTLESSNESS [None]
  - SCHIZOAFFECTIVE DISORDER [None]
  - SUICIDAL IDEATION [None]
  - THINKING ABNORMAL [None]
